FAERS Safety Report 13613430 (Version 3)
Quarter: 2017Q2

REPORT INFORMATION
  Report Type: Spontaneous
  Country: US (occurrence: US)
  Receive Date: 20170605
  Receipt Date: 20170615
  Transmission Date: 20170830
  Serious: Yes (Death)
  Sender: FDA-Public Use
  Company Number: US-CELGENEUS-USA-20170509399

PATIENT
  Sex: Female

DRUGS (8)
  1. BENDAMUSTINE [Concomitant]
     Active Substance: BENDAMUSTINE
     Indication: PRODUCT USED FOR UNKNOWN INDICATION
     Route: 065
  2. COMPAZINE [Concomitant]
     Active Substance: PROCHLORPERAZINE MALEATE
     Indication: NAUSEA
     Dosage: 40 MILLIGRAM
     Route: 065
  3. ALBUTEROL. [Concomitant]
     Active Substance: ALBUTEROL
     Indication: PRODUCT USED FOR UNKNOWN INDICATION
     Dosage: 90 MICROGRAM
     Route: 065
  4. VELCADE [Concomitant]
     Active Substance: BORTEZOMIB
     Indication: PRODUCT USED FOR UNKNOWN INDICATION
     Route: 065
     Dates: start: 20170302
  5. IBRUTINIB [Concomitant]
     Active Substance: IBRUTINIB
     Indication: PRODUCT USED FOR UNKNOWN INDICATION
     Route: 065
     Dates: start: 201511, end: 201701
  6. PREDNISONE. [Concomitant]
     Active Substance: PREDNISONE
     Indication: PRODUCT USED FOR UNKNOWN INDICATION
     Dosage: 3 TABS FOR 3 DAYS THEN 2 TABS FOR 5 DAYS THAN 1 TAB DAILY FOR 3 DAYS.
     Route: 065
  7. REVLIMID [Suspect]
     Active Substance: LENALIDOMIDE
     Indication: MANTLE CELL LYMPHOMA
     Dosage: 15 MILLIGRAM
     Route: 048
     Dates: start: 201703, end: 20170426
  8. POTASSIUM [Concomitant]
     Active Substance: POTASSIUM
     Indication: PRODUCT USED FOR UNKNOWN INDICATION
     Dosage: 10 MILLIEQUIVALENTS
     Route: 065

REACTIONS (1)
  - Mantle cell lymphoma [Fatal]

NARRATIVE: CASE EVENT DATE: 2017
